FAERS Safety Report 8269282-2 (Version None)
Quarter: 2012Q2

REPORT INFORMATION
  Report Type: 
  Country: None (occurrence: None)
  Receive Date: 20120409
  Receipt Date: 20120321
  Transmission Date: 20120825
  Serious: Yes (Hospitalization, Other)
  Sender: FDA-Public Use
  Company Number: CHPA2012US001618

PATIENT
  Sex: Female

DRUGS (11)
  1. LOTREL [Concomitant]
     Dosage: 1 DF, QD
     Route: 048
  2. EXCEDRIN EXTRA STRENGTH TABLETS [Suspect]
     Indication: MIGRAINE
     Dosage: 2 DF, PRN
     Route: 048
  3. MIRALAX [Concomitant]
     Dosage: 1 DF, QD
     Route: 048
  4. ALPRAZOLAM [Concomitant]
     Dosage: 0.25 MG, QD
     Route: 048
  5. BYSTOLIC [Concomitant]
     Dosage: 10 MG, QD
     Route: 048
  6. PROBIOTICS [Concomitant]
     Dosage: 1 DF, QD
     Route: 048
  7. CRESTOR [Concomitant]
     Dosage: 10 MG, QD
     Route: 048
  8. BROMOCRIPTINE MESYLATE [Concomitant]
     Dosage: 2.5 MG, QD
     Route: 048
  9. LEVOTHYROXINE SODIUM [Concomitant]
     Dosage: 1 DF, QD
     Route: 048
  10. ASPIRIN [Concomitant]
     Dosage: 81 MG, QD
     Route: 048
  11. POTASSIUM CHLORIDE [Concomitant]
     Dosage: 20 MEQ, QD
     Route: 048

REACTIONS (17)
  - ABDOMINAL PAIN [None]
  - HIATUS HERNIA [None]
  - CHOLELITHIASIS [None]
  - DYSGEUSIA [None]
  - DYSPHAGIA [None]
  - BACK PAIN [None]
  - GALLBLADDER DISORDER [None]
  - PULMONARY FIBROSIS [None]
  - ABDOMINAL DISTENSION [None]
  - GASTRITIS EROSIVE [None]
  - GASTRIC DILATATION [None]
  - LIVER DISORDER [None]
  - ABDOMINAL PAIN UPPER [None]
  - NAUSEA [None]
  - ASTHENIA [None]
  - GASTRIC DISORDER [None]
  - MALAISE [None]
